FAERS Safety Report 7961042-2 (Version None)
Quarter: 2011Q4

REPORT INFORMATION
  Report Type: 
  Country: None (occurrence: None)
  Receive Date: 20111202
  Receipt Date: 20111123
  Transmission Date: 20120403
  Serious: Yes (Other)
  Sender: FDA-Public Use
  Company Number: 2011MA016885

PATIENT
  Age: 26 Year
  Sex: Male

DRUGS (1)
  1. FINASTERIDE [Suspect]
     Indication: ALOPECIA
     Dosage: 1 MG; ; PO
     Route: 048
     Dates: start: 20110301, end: 20110320

REACTIONS (2)
  - LOSS OF LIBIDO [None]
  - DYSTHYMIC DISORDER [None]
